FAERS Safety Report 5363595-X (Version None)
Quarter: 2007Q2

REPORT INFORMATION
  Report Type: 
  Country: None (occurrence: None)
  Receive Date: 20070618
  Receipt Date: 20070618
  Transmission Date: 20071010
  Serious: Yes (Life-Threatening)
  Sender: FDA-Public Use
  Company Number: None

PATIENT
  Age: 21 Year
  Sex: Female
  Weight: 54 kg

DRUGS (1)
  1. PROPOFOL [Suspect]
     Indication: SEDATION
     Dosage: 100 MCG/KG/MIN IV DRIP
     Route: 041
     Dates: start: 20070521, end: 20070521

REACTIONS (3)
  - AGITATION [None]
  - ANION GAP INCREASED [None]
  - BLOOD LACTIC ACID INCREASED [None]
